FAERS Safety Report 9838270 (Version 1)
Quarter: 2013Q4

REPORT INFORMATION
  Report Type: Spontaneous
  Country: US (occurrence: None)
  Receive Date: 20131205
  Receipt Date: 20131205
  Transmission Date: 20140711
  Serious: No
  Sender: FDA-Public Use
  Company Number: 163-POMAL-13100804

PATIENT
  Age: 71 Year
  Sex: Male
  Weight: 94.53 kg

DRUGS (1)
  1. POMALYST [Suspect]
     Indication: PLASMA CELL MYELOMA
     Dosage: 1 IN 1 D
     Route: 048
     Dates: start: 20130617, end: 20130622

REACTIONS (2)
  - Skin exfoliation [None]
  - Performance status decreased [None]
